FAERS Safety Report 11794950 (Version 12)
Quarter: 2018Q2

REPORT INFORMATION
  Report Type: Report from Study
  Country: FR (occurrence: FR)
  Receive Date: 20151202
  Receipt Date: 20180622
  Transmission Date: 20180711
  Serious: Yes (Death, Hospitalization, Other)
  Sender: FDA-Public Use
  Company Number: FR-INCYTE CORPORATION-2015IN006304

PATIENT

DRUGS (10)
  1. STAGID [Concomitant]
     Active Substance: METFORMIN PAMOATE
     Indication: DIABETES MELLITUS
     Dosage: UNK
     Route: 065
  2. PURINETHOL [Concomitant]
     Active Substance: MERCAPTOPURINE
     Indication: PRODUCT USED FOR UNKNOWN INDICATION
     Dosage: UNK
     Route: 065
  3. AMOXICILLIN. [Concomitant]
     Active Substance: AMOXICILLIN
     Indication: TOOTH DISORDER
     Dosage: UNK
     Route: 048
     Dates: start: 20151006, end: 20151015
  4. OMEPRAZOLE. [Concomitant]
     Active Substance: OMEPRAZOLE
     Dosage: 20 MG, UNK
     Route: 065
     Dates: start: 200801
  5. OMEPRAZOLE. [Concomitant]
     Active Substance: OMEPRAZOLE
     Indication: PROPHYLAXIS AGAINST GASTROINTESTINAL ULCER
     Dosage: 20 MG, UNK
     Route: 065
  6. JAKAVI [Suspect]
     Active Substance: RUXOLITINIB
     Indication: MYELOFIBROSIS
     Dosage: 15 MG, BID
     Route: 048
     Dates: start: 20110718, end: 201510
  7. GLUCOPHAGE [Concomitant]
     Active Substance: METFORMIN HYDROCHLORIDE
     Indication: DIABETES MELLITUS
     Dosage: UNK
     Route: 065
     Dates: start: 20071218
  8. ASPEGIC [Concomitant]
     Active Substance: ASPIRIN DL-LYSINE
     Indication: POLYCYTHAEMIA VERA
     Dosage: 100 MG, UNK
     Route: 065
     Dates: start: 19890126
  9. JAKAVI [Suspect]
     Active Substance: RUXOLITINIB
     Dosage: 7.5 MG, BID
     Route: 048
     Dates: start: 20151026
  10. STAGID [Concomitant]
     Active Substance: METFORMIN PAMOATE
     Dosage: 2 DF, QD (LONG-TERM BID)

REACTIONS (23)
  - Second primary malignancy [Recovered/Resolved]
  - Pain in extremity [Not Recovered/Not Resolved]
  - Oedema peripheral [Recovered/Resolved]
  - Cough [Unknown]
  - Histiocytosis haematophagic [Fatal]
  - Pyrexia [Unknown]
  - Pneumocystis jirovecii pneumonia [Recovered/Resolved]
  - Multiple organ dysfunction syndrome [Fatal]
  - Basal cell carcinoma [Recovered/Resolved]
  - Tooth disorder [Unknown]
  - Splenomegaly [Fatal]
  - Thrombocytopenia [Fatal]
  - Anaemia [Fatal]
  - Dyspnoea [Unknown]
  - General physical health deterioration [Not Recovered/Not Resolved]
  - Anaemia [Recovered/Resolved]
  - Haemoptysis [Unknown]
  - Acute myeloid leukaemia [Fatal]
  - Toxoplasmosis [Unknown]
  - Anaemia [Recovered/Resolved]
  - Rales [Unknown]
  - Blast cell proliferation [Fatal]
  - Bone marrow basophilic leukocyte count increased [Fatal]

NARRATIVE: CASE EVENT DATE: 20151016
